FAERS Safety Report 15538170 (Version 11)
Quarter: 2022Q2

REPORT INFORMATION
  Report Type: Spontaneous
  Country: RO (occurrence: RO)
  Receive Date: 20181022
  Receipt Date: 20220418
  Transmission Date: 20220721
  Serious: Yes (Hospitalization, Other)
  Sender: FDA-Public Use
  Company Number: RO-MYLANLABS-2018M1076181

PATIENT
  Age: 80 Year
  Sex: Male

DRUGS (56)
  1. LERCANIDIPINE [Suspect]
     Active Substance: LERCANIDIPINE
     Indication: Hypertension
     Dosage: 10 MILLIGRAM, QD
     Route: 065
     Dates: start: 2012
  2. LERCANIDIPINE [Suspect]
     Active Substance: LERCANIDIPINE
     Dosage: 10 MILLIGRAM, QD
     Route: 065
  3. LERCANIDIPINE [Suspect]
     Active Substance: LERCANIDIPINE
     Dosage: UNK
     Route: 065
  4. LERCANIDIPINE [Suspect]
     Active Substance: LERCANIDIPINE
     Dosage: 1 MILLIGRAM, QD
     Route: 065
  5. LERCANIDIPINE [Suspect]
     Active Substance: LERCANIDIPINE
     Dosage: 1 MILLIGRAM, QD
     Route: 065
     Dates: start: 2012
  6. CLOPIDOGREL [Suspect]
     Active Substance: CLOPIDOGREL BISULFATE
     Indication: Coronary artery disease
     Dosage: 75 MILLIGRAM, QD
     Route: 048
     Dates: start: 2016
  7. CLOPIDOGREL [Suspect]
     Active Substance: CLOPIDOGREL BISULFATE
     Dosage: 75 MILLIGRAM, QD
     Route: 065
  8. RASAGILINE MESYLATE [Suspect]
     Active Substance: RASAGILINE MESYLATE
     Indication: Parkinson^s disease
     Dosage: 1 MILLIGRAM, QD
     Route: 048
     Dates: start: 2017
  9. RASAGILINE MESYLATE [Suspect]
     Active Substance: RASAGILINE MESYLATE
     Indication: Hypertension
  10. CANDESARTAN [Suspect]
     Active Substance: CANDESARTAN
     Indication: Hypertension
     Dosage: 16 MILLIGRAM, QD
     Route: 065
     Dates: start: 2012
  11. CANDESARTAN [Suspect]
     Active Substance: CANDESARTAN
     Dosage: UNK
     Route: 065
  12. RASAGILINE [Suspect]
     Active Substance: RASAGILINE
     Indication: Parkinson^s disease
     Dosage: 1 MILLIGRAM, QD
     Route: 005
     Dates: start: 2017
  13. LEVODOPA [Suspect]
     Active Substance: LEVODOPA
     Indication: Parkinson^s disease
     Dosage: 250 MILLIGRAM,250 MG/ 25 MG (250 MG/ 25 MG, 1 IN 1 D)
     Route: 065
     Dates: start: 2017
  14. LEVODOPA [Suspect]
     Active Substance: LEVODOPA
     Dosage: 250 MILLIGRAM,250 MG/ 25 MG (250 MG/ 25 MG, 1 IN 1 D)
     Dates: start: 2017
  15. CARBIDOPA [Suspect]
     Active Substance: CARBIDOPA
     Indication: Parkinson^s disease
     Dosage: 25 MILLIGRAM,250 MG/ 25 MG (250 MG/ 25 MG, 1 IN 1 D)
     Route: 065
     Dates: start: 2017
  16. RAMIPRIL [Suspect]
     Active Substance: RAMIPRIL
     Indication: Hypertension
     Dosage: 5 MILLIGRAM, QD
     Route: 048
     Dates: start: 2016
  17. RAMIPRIL [Suspect]
     Active Substance: RAMIPRIL
     Indication: Acute coronary syndrome
     Dosage: 5 MILLIGRAM, QD
     Route: 065
     Dates: start: 2016
  18. RAMIPRIL [Suspect]
     Active Substance: RAMIPRIL
     Indication: Coronary artery disease
     Dosage: UNK
     Route: 065
  19. AMIODARONE [Suspect]
     Active Substance: AMIODARONE
     Indication: Atrial fibrillation
     Dosage: UNK
     Route: 065
     Dates: start: 2015
  20. BISOPROLOL [Suspect]
     Active Substance: BISOPROLOL
     Indication: Coronary artery disease
     Dosage: 5 MILLIGRAM, QD
     Route: 048
     Dates: start: 2016
  21. BISOPROLOL [Suspect]
     Active Substance: BISOPROLOL
     Indication: Acute coronary syndrome
     Dosage: UNK
     Route: 065
  22. BISOPROLOL [Suspect]
     Active Substance: BISOPROLOL
     Indication: Hypertension
  23. RIVAROXABAN [Suspect]
     Active Substance: RIVAROXABAN
     Indication: Anticoagulant therapy
     Dosage: 20 MILLIGRAM, QD
     Route: 065
     Dates: start: 2016
  24. RIVAROXABAN [Suspect]
     Active Substance: RIVAROXABAN
     Indication: Mesenteric artery thrombosis
  25. CARBIDOPA\LEVODOPA [Suspect]
     Active Substance: CARBIDOPA\LEVODOPA
     Indication: Parkinson^s disease
     Dosage: 1 DF, QD (25/250 MG)
     Route: 065
  26. CARBIDOPA\LEVODOPA [Suspect]
     Active Substance: CARBIDOPA\LEVODOPA
     Dosage: 1 DF, QD (25/250 MG)
     Route: 050
  27. CARBIDOPA\LEVODOPA [Suspect]
     Active Substance: CARBIDOPA\LEVODOPA
     Dosage: 250/25 MG PER DAY (INTESTINAL GEL)
     Route: 050
     Dates: start: 2017
  28. CARBIDOPA\LEVODOPA [Suspect]
     Active Substance: CARBIDOPA\LEVODOPA
     Dosage: 275 MILLIGRAM, QD
     Dates: start: 2017
  29. CARBIDOPA\LEVODOPA [Suspect]
     Active Substance: CARBIDOPA\LEVODOPA
     Dosage: 250 MG/ 25 MG (250 MG/ 25 MG, 1 IN 1 D) INTESTINAL GEL
     Dates: start: 2017
  30. CARBIDOPA\LEVODOPA [Suspect]
     Active Substance: CARBIDOPA\LEVODOPA
     Dosage: 5 MILLIGRAM, QD
  31. CLOPIDOGREL BISULFATE [Suspect]
     Active Substance: CLOPIDOGREL BISULFATE
     Indication: Coronary artery disease
     Dosage: 75 MILLIGRAM, QD
     Route: 005
     Dates: start: 2016
  32. CLOPIDOGREL BISULFATE [Suspect]
     Active Substance: CLOPIDOGREL BISULFATE
     Indication: Acute coronary syndrome
  33. CLOPIDOGREL BISULFATE [Suspect]
     Active Substance: CLOPIDOGREL BISULFATE
     Indication: Cerebrovascular disorder
  34. MIDODRINE [Suspect]
     Active Substance: MIDODRINE
     Indication: Product used for unknown indication
     Dosage: 2.5 MILLIGRAM, QD(2.5 MILLIGRAM, ONCE A DAY)
     Route: 065
  35. ROSUVASTATIN [Suspect]
     Active Substance: ROSUVASTATIN
     Indication: Coronary artery disease
     Dosage: 20 MILLIGRAM, QD
     Route: 048
     Dates: start: 2016
  36. ROSUVASTATIN [Suspect]
     Active Substance: ROSUVASTATIN
     Indication: Acute coronary syndrome
     Dosage: UNK
     Route: 065
  37. ROSUVASTATIN [Suspect]
     Active Substance: ROSUVASTATIN
     Indication: Orthostatic hypertension
     Dosage: 10 MILLIGRAM, QD
     Route: 048
     Dates: start: 2016
  38. ROSUVASTATIN [Suspect]
     Active Substance: ROSUVASTATIN
     Indication: Presyncope
     Dosage: 10 MILLIGRAM, QD
     Route: 048
  39. ROSUVASTATIN [Suspect]
     Active Substance: ROSUVASTATIN
     Indication: Dizziness
     Dosage: 20 MILLIGRAM, QD
     Route: 048
     Dates: start: 2019
  40. ROSUVASTATIN [Suspect]
     Active Substance: ROSUVASTATIN
     Indication: Syncope
  41. ROSUVASTATIN [Suspect]
     Active Substance: ROSUVASTATIN
     Indication: Coronary artery disease
  42. ROSUVASTATIN [Suspect]
     Active Substance: ROSUVASTATIN
     Indication: Hypertension
  43. ROSUVASTATIN [Suspect]
     Active Substance: ROSUVASTATIN
     Indication: Blood pressure systolic
  44. ROSUVASTATIN [Suspect]
     Active Substance: ROSUVASTATIN
     Indication: Intermittent claudication
  45. ROSUVASTATIN [Suspect]
     Active Substance: ROSUVASTATIN
     Indication: Orthostatic hypertension
  46. AMIODARONE HYDROCHLORIDE [Suspect]
     Active Substance: AMIODARONE HYDROCHLORIDE
     Indication: Atrial fibrillation
     Dosage: UNK
     Dates: start: 2015
  47. MIDODRINE [Suspect]
     Active Substance: MIDODRINE
     Indication: Hypertension
     Dosage: 2.5 MILLIGRAM, QD
  48. MIDODRINE [Suspect]
     Active Substance: MIDODRINE
     Indication: Acute coronary syndrome
     Dosage: 5 MILLIGRAM, QD
  49. RASAGILINE [Concomitant]
     Active Substance: RASAGILINE
     Indication: Parkinson^s disease
     Dosage: 1 MG, QD
     Route: 065
     Dates: start: 2017
  50. RASAGILINE [Concomitant]
     Active Substance: RASAGILINE
     Dosage: UNK
     Route: 048
  51. RASAGILINE [Concomitant]
     Active Substance: RASAGILINE
     Dosage: UNK
     Route: 065
  52. OMEPRAZOLE [Concomitant]
     Active Substance: OMEPRAZOLE
     Indication: Syncope
     Dosage: 40 MILLIGRAM DAILY
     Route: 065
  53. OMEPRAZOLE [Concomitant]
     Active Substance: OMEPRAZOLE
     Indication: Presyncope
     Dosage: 40 MILLIGRAM, QD
     Route: 005
  54. OMEPRAZOLE [Concomitant]
     Active Substance: OMEPRAZOLE
     Indication: Intermittent claudication
     Dosage: UNK
  55. OMEPRAZOLE [Concomitant]
     Active Substance: OMEPRAZOLE
     Indication: Orthostatic hypertension
  56. CLOPIDOGREL [Concomitant]
     Active Substance: CLOPIDOGREL BISULFATE
     Indication: Coronary artery disease
     Dosage: 75 MILLIGRAM
     Route: 048
     Dates: start: 2016

REACTIONS (10)
  - Supine hypertension [Unknown]
  - Condition aggravated [Unknown]
  - Orthostatic hypotension [Unknown]
  - Orthostatic hypertension [Unknown]
  - Syncope [Recovered/Resolved with Sequelae]
  - Presyncope [Recovered/Resolved]
  - Dizziness [Recovered/Resolved]
  - Intermittent claudication [Recovered/Resolved]
  - Mesenteric artery thrombosis [Unknown]
  - Abdominal pain [Unknown]

NARRATIVE: CASE EVENT DATE: 20160101
